FAERS Safety Report 22644767 (Version 1)
Quarter: 2023Q2

REPORT INFORMATION
  Report Type: Spontaneous
  Country: None (occurrence: PT)
  Receive Date: 20230627
  Receipt Date: 20230627
  Transmission Date: 20230722
  Serious: Yes (Hospitalization, Other)
  Sender: FDA-Public Use
  Company Number: PT-B.Braun Medical Inc.-2143150

PATIENT
  Age: 77 Year
  Sex: Male
  Weight: 80 kg

DRUGS (10)
  1. LIDOCAINE HYDROCHLORIDE [Suspect]
     Active Substance: LIDOCAINE HYDROCHLORIDE
     Indication: Cystoscopy
  2. GALANTAMINE HYDROBROMIDE [Suspect]
     Active Substance: GALANTAMINE HYDROBROMIDE
  3. BUPROPION [Suspect]
     Active Substance: BUPROPION
  4. ESOMEPRAZOLE. [Concomitant]
     Active Substance: ESOMEPRAZOLE MAGNESIUM
  5. NEBIVOLOL [Concomitant]
     Active Substance: NEBIVOLOL
  6. CHONDROITIN [Concomitant]
     Active Substance: CHONDROITIN
  7. Cloreto de trospio [Concomitant]
  8. CHLORTHALIDONE [Concomitant]
     Active Substance: CHLORTHALIDONE
  9. ALFUZOSIN [Concomitant]
     Active Substance: ALFUZOSIN
  10. BROMAZEPAM [Concomitant]
     Active Substance: BROMAZEPAM

REACTIONS (4)
  - Chromaturia [Recovered/Resolved]
  - Pyrexia [Recovered/Resolved]
  - Hepatitis toxic [Recovered/Resolved]
  - Abdominal pain upper [Recovered/Resolved]
